FAERS Safety Report 8738783 (Version 2)
Quarter: 2013Q1

REPORT INFORMATION
  Report Type: Spontaneous
  Country: CA (occurrence: CA)
  Receive Date: 20120823
  Receipt Date: 20130125
  Transmission Date: 20140127
  Serious: Yes (Other)
  Sender: FDA-Public Use
  Company Number: CA-BRISTOL-MYERS SQUIBB COMPANY-16859159

PATIENT
  Age: 37 Year
  Sex: Female

DRUGS (2)
  1. SPRYCEL [Suspect]
     Indication: CHRONIC MYELOID LEUKAEMIA
     Dosage: INTER ON 13AUG AND 14AUG2012 AND THEN RESTARTED
     Route: 048
     Dates: start: 20111012
  2. ALLOPURINOL [Concomitant]

REACTIONS (7)
  - Back pain [Unknown]
  - Splenomegaly [Unknown]
  - Nausea [Unknown]
  - Vomiting [Unknown]
  - Leukocytosis [Unknown]
  - Nasopharyngitis [Unknown]
  - Treatment noncompliance [Unknown]
